FAERS Safety Report 10931571 (Version 1)
Quarter: 2015Q1

REPORT INFORMATION
  Report Type: Spontaneous
  Country: JP (occurrence: JP)
  Receive Date: 20150319
  Receipt Date: 20150319
  Transmission Date: 20150721
  Serious: Yes (Other)
  Sender: FDA-Public Use
  Company Number: JP-MALLINCKRODT-T201501672

PATIENT
  Age: 70 Year
  Sex: Male

DRUGS (22)
  1. METHADONE [Suspect]
     Active Substance: METHADONE HYDROCHLORIDE
     Dosage: 10 MG, (20 MG DAILY DOSE)
     Route: 048
     Dates: start: 20150609, end: 20150615
  2. METHADONE [Suspect]
     Active Substance: METHADONE HYDROCHLORIDE
     Dosage: 15 MG (45 MG DAILY DOSE)
     Route: 048
     Dates: start: 20140624, end: 20150202
  3. ABSTRAL SUBLINGUAL TABLETS [Concomitant]
     Dosage: 0.1 MG, PRN
     Route: 060
     Dates: start: 20150130, end: 20150204
  4. METHADONE [Suspect]
     Active Substance: METHADONE HYDROCHLORIDE
     Dosage: 45 MG DAILY DOSE
     Route: 048
     Dates: start: 20150203, end: 20150203
  5. OPSO [Concomitant]
     Active Substance: MORPHINE HYDROCHLORIDE
     Dosage: 15 MG
     Route: 048
     Dates: start: 20140601, end: 20150131
  6. LOXOPROFEN SODIUM [Concomitant]
     Active Substance: LOXOPROFEN SODIUM
     Dosage: 180 MG
     Route: 048
     Dates: end: 20140625
  7. REBAMIPIDE [Concomitant]
     Active Substance: REBAMIPIDE
     Dosage: 300 MG
     Route: 048
     Dates: end: 20140625
  8. MORPHINE HYDROCHLORIDE HYDRATE [Concomitant]
     Active Substance: MORPHINE HYDROCHLORIDE
     Dosage: 30 MG
     Route: 058
     Dates: start: 20150205, end: 20150209
  9. MORPHINE HYDROCHLORIDE HYDRATE [Concomitant]
     Active Substance: MORPHINE HYDROCHLORIDE
     Dosage: 70 MG
     Route: 058
     Dates: start: 20150213, end: 20151220
  10. LAC-B [Concomitant]
     Active Substance: BIFIDOBACTERIUM SPP.
     Dosage: 3 G
     Route: 048
     Dates: end: 20140625
  11. MORPHINE HYDROCHLORIDE HYDRATE [Concomitant]
     Active Substance: MORPHINE HYDROCHLORIDE
     Dosage: 10 MG
     Route: 058
     Dates: start: 20150204, end: 20150205
  12. GASLON [Concomitant]
     Active Substance: IRSOGLADINE MALEATE
     Dosage: 4 MG
     Route: 048
     Dates: end: 20150205
  13. METHADONE [Suspect]
     Active Substance: METHADONE HYDROCHLORIDE
     Indication: CANCER PAIN
     Dosage: 5 MG, (15 MG DAILY DOSE)
     Route: 048
     Dates: start: 20140602, end: 20140608
  14. P GUARD [Concomitant]
     Active Substance: MORPHINE SULFATE
     Dosage: 30 MG
     Route: 048
     Dates: start: 20140602, end: 20140602
  15. CELECOX [Concomitant]
     Active Substance: CELECOXIB
     Dosage: 400 MG, UNK
     Route: 048
     Dates: start: 20140626, end: 20150205
  16. MORPHINE HYDROCHLORIDE HYDRATE [Concomitant]
     Active Substance: MORPHINE HYDROCHLORIDE
     Dosage: 60 MG
     Route: 058
     Dates: start: 20150210, end: 20150212
  17. LYRICA [Concomitant]
     Active Substance: PREGABALIN
     Dosage: 300 MG
     Route: 048
     Dates: end: 20150205
  18. METHADONE [Suspect]
     Active Substance: METHADONE HYDROCHLORIDE
     Dosage: 10 MG (30 MG DAILY DOSE)
     Route: 048
     Dates: start: 20140616, end: 20140623
  19. KOLANTYL                           /01346601/ [Concomitant]
     Dosage: 1 G, UNK
     Route: 048
     Dates: end: 20140622
  20. FAMOTIDINE OD [Concomitant]
     Dosage: 20 MG, UNK
     Route: 048
     Dates: start: 20140618, end: 20150205
  21. RANITIDINE [Concomitant]
     Active Substance: RANITIDINE\RANITIDINE HYDROCHLORIDE
     Dosage: 150 MG
     Route: 048
     Dates: end: 20140617
  22. ULCERLMIN [Concomitant]
     Active Substance: SUCRALFATE
     Dosage: 1 G, UNK
     Route: 048
     Dates: start: 20140623, end: 20150205

REACTIONS (2)
  - Dermatitis [Recovered/Resolved]
  - Delirium [Not Recovered/Not Resolved]

NARRATIVE: CASE EVENT DATE: 20150123
